FAERS Safety Report 20594555 (Version 2)
Quarter: 2022Q1

REPORT INFORMATION
  Report Type: Spontaneous
  Country: CA (occurrence: CA)
  Receive Date: 20220315
  Receipt Date: 20220322
  Transmission Date: 20220423
  Serious: Yes (Hospitalization, Other)
  Sender: FDA-Public Use
  Company Number: CA-MLMSERVICE-20220303-3412180-1

PATIENT
  Age: 39 Year
  Sex: Female
  Weight: 115 kg

DRUGS (6)
  1. APIXABAN [Interacting]
     Active Substance: APIXABAN
     Indication: Anticoagulant therapy
     Dosage: APIXABAN WAS HELD FOR 3 DAYS PRIOR TO HER PROCEDURE ON JUNE 17 (INTENDED TO BE WITHHELD 2 DAYS
     Dates: start: 20210527, end: 20210612
  2. AMIODARONE [Interacting]
     Active Substance: AMIODARONE
     Indication: Atrial fibrillation
     Route: 048
     Dates: start: 20210509, end: 20210514
  3. CARBAMAZEPINE [Interacting]
     Active Substance: CARBAMAZEPINE
     Indication: Epilepsy
     Route: 048
     Dates: start: 2010
  4. TOCILIZUMAB [Interacting]
     Active Substance: TOCILIZUMAB
     Indication: COVID-19 pneumonia
     Route: 042
     Dates: start: 20210508
  5. DEXAMETHASONE [Concomitant]
     Active Substance: DEXAMETHASONE
     Indication: COVID-19 pneumonia
     Route: 048
     Dates: start: 20210508, end: 20210518
  6. LAMOTRIGINE [Concomitant]
     Active Substance: LAMOTRIGINE
     Indication: Epilepsy
     Route: 048
     Dates: start: 2010

REACTIONS (2)
  - Drug level fluctuating [Unknown]
  - Drug interaction [Unknown]

NARRATIVE: CASE EVENT DATE: 20210514
